FAERS Safety Report 4518876-6 (Version None)
Quarter: 2004Q4

REPORT INFORMATION
  Report Type: 
  Country: None (occurrence: None)
  Receive Date: 20041206
  Receipt Date: 20030327
  Transmission Date: 20050328
  Serious: Yes (Disabling, Congenital Anomaly)
  Sender: FDA-Public Use
  Company Number: US-BRISTOL-MYERS SQUIBB COMPANY-12223970

PATIENT
  Sex: Female

DRUGS (6)
  1. ECAZIDE TABS 50 MG/25 MG [Suspect]
     Dosage: DOSE: 50 MG/25 MG TABLETS.
     Route: 064
     Dates: end: 20020927
  2. CAPTOPRIL [Suspect]
     Route: 064
     Dates: end: 20020927
  3. TERCIAN [Suspect]
     Route: 064
     Dates: end: 20020927
  4. XANAX [Suspect]
     Route: 064
  5. DEROXAT [Suspect]
     Route: 064
     Dates: end: 20020927
  6. INSULIN [Suspect]
     Route: 064

REACTIONS (8)
  - ACQUIRED CARDIAC SEPTAL DEFECT [None]
  - ATROPHY [None]
  - CONGENITAL VENTRICULAR SEPTAL DEFECT [None]
  - DRUG EXPOSURE DURING PREGNANCY [None]
  - HEART DISEASE CONGENITAL [None]
  - PREGNANCY [None]
  - PULMONARY ARTERY STENOSIS [None]
  - TRANSPOSITION OF THE GREAT VESSELS [None]
